FAERS Safety Report 11877270 (Version 2)
Quarter: 2016Q1

REPORT INFORMATION
  Report Type: Spontaneous
  Country: US (occurrence: US)
  Receive Date: 20151229
  Receipt Date: 20160115
  Transmission Date: 20160526
  Serious: Yes (Death, Other)
  Sender: FDA-Public Use
  Company Number: US-ACTELION-A-US2015-128940

PATIENT
  Age: 80 Year
  Sex: Female
  Weight: 57.14 kg

DRUGS (10)
  1. VITAMIN D 2000 [Concomitant]
     Dosage: UNK, QD
  2. METOPROLOL TARTRATE. [Concomitant]
     Active Substance: METOPROLOL TARTRATE
     Dosage: 25 MG, UNK
  3. COZAAR [Concomitant]
     Active Substance: LOSARTAN POTASSIUM
     Dosage: 25 MG, PRN
  4. OXYGEN. [Concomitant]
     Active Substance: OXYGEN
  5. TRACLEER [Suspect]
     Active Substance: BOSENTAN
     Indication: PULMONARY ARTERIAL HYPERTENSION
     Dosage: UNK
     Route: 048
     Dates: end: 20151215
  6. AMOXICILLIN SODIUM W/CLAVULANATE POTASSIUM [Concomitant]
     Active Substance: AMOXICILLIN\CLAVULANATE POTASSIUM
     Dosage: 125 MG, BID
  7. CREON [Concomitant]
     Active Substance: PANCRELIPASE AMYLASE\PANCRELIPASE LIPASE\PANCRELIPASE PROTEASE
     Dosage: 12000 U, UNK
  8. PROBIOTIC [Concomitant]
     Active Substance: PROBIOTICS NOS
     Dosage: UNK, QD
  9. ASPIRIN. [Concomitant]
     Active Substance: ASPIRIN
     Dosage: 81 MG, QD
  10. FERROUS SULFATE [Concomitant]
     Active Substance: FERROUS SULFATE\FERROUS SULFATE, DRIED
     Dosage: UNK, BID

REACTIONS (16)
  - Headache [Unknown]
  - Oxygen saturation decreased [Unknown]
  - Right ventricular failure [Unknown]
  - Arthritis [Unknown]
  - Metastases to liver [Unknown]
  - Productive cough [Recovering/Resolving]
  - Adenocarcinoma [Unknown]
  - Lung disorder [Unknown]
  - Hypoxia [Unknown]
  - Back pain [Not Recovered/Not Resolved]
  - Diplopia [Unknown]
  - Bronchiectasis [Unknown]
  - Left ventricular failure [Unknown]
  - Dyspnoea [Not Recovered/Not Resolved]
  - Disease progression [Fatal]
  - Pancreatic carcinoma [Unknown]

NARRATIVE: CASE EVENT DATE: 20151215
